FAERS Safety Report 4337186-3 (Version None)
Quarter: 2004Q2

REPORT INFORMATION
  Report Type: 
  Country: None (occurrence: None)
  Receive Date: 20040407
  Receipt Date: 20040330
  Transmission Date: 20050107
  Serious: Yes (Other)
  Sender: FDA-Public Use
  Company Number: US-SHR-04-021191

PATIENT
  Age: 42 Year
  Sex: Female
  Weight: 151.9 kg

DRUGS (8)
  1. BETASERON [Suspect]
     Indication: MULTIPLE SCLEROSIS
     Dosage: 8 MIU, EVERY 2D, SUBCUTANEOUS
     Route: 058
     Dates: start: 20010119
  2. INSULIN [Concomitant]
  3. DURAGESIC (FENTANLY) [Concomitant]
  4. WELLBUTRIN [Concomitant]
  5. NORTRIPTYLINE HCL [Concomitant]
  6. PRILOSEC [Concomitant]
  7. OXYCONTIN [Concomitant]
  8. METHADONE HCL [Concomitant]

REACTIONS (10)
  - ANOREXIA [None]
  - BREAST CANCER METASTATIC [None]
  - BREAST CANCER STAGE IV [None]
  - CONDITION AGGRAVATED [None]
  - MEDICATION ERROR [None]
  - MEMORY IMPAIRMENT [None]
  - METASTASES TO BONE [None]
  - MULTIPLE SCLEROSIS [None]
  - PAIN [None]
  - WEIGHT DECREASED [None]
